FAERS Safety Report 23552857 (Version 1)
Quarter: 2024Q1

REPORT INFORMATION
  Report Type: Spontaneous
  Country: IN (occurrence: IN)
  Receive Date: 20240222
  Receipt Date: 20240222
  Transmission Date: 20240410
  Serious: Yes (Death, Hospitalization)
  Sender: FDA-Public Use
  Company Number: IN-PFIZER INC-PV202400023954

PATIENT
  Age: 50 Year
  Sex: Male

DRUGS (3)
  1. MEROPENEM [Suspect]
     Active Substance: MEROPENEM
     Indication: Klebsiella infection
     Dosage: UNK
     Route: 042
  2. AMIKACIN [Suspect]
     Active Substance: AMIKACIN
     Indication: Klebsiella infection
     Dosage: UNK
  3. OSELTAMIVIR [Suspect]
     Active Substance: OSELTAMIVIR
     Indication: Prophylaxis
     Dosage: UNK

REACTIONS (1)
  - Drug ineffective [Fatal]
